FAERS Safety Report 6833445-0 (Version None)
Quarter: 2010Q3

REPORT INFORMATION
  Report Type: 
  Country: None (occurrence: None)
  Receive Date: 20100712
  Receipt Date: 20070329
  Transmission Date: 20110219
  Serious: No
  Sender: FDA-Public Use
  Company Number: US-PFIZER INC-2007024520

PATIENT
  Age: 62 Year
  Sex: Male
  Weight: 99.79 kg

DRUGS (11)
  1. CHANTIX [Suspect]
     Indication: SMOKING CESSATION THERAPY
     Dates: start: 20070312
  2. ACETYLSALICYLIC ACID [Concomitant]
  3. VITAMIN E [Concomitant]
  4. WARFARIN [Concomitant]
  5. CILOSTAZOL [Concomitant]
  6. CITALOPRAM HYDROBROMIDE [Concomitant]
  7. VYTORIN [Concomitant]
  8. RENALTABS [Concomitant]
  9. RENAGEL [Concomitant]
  10. ALL OTHER THERAPEUTIC PRODUCTS [Concomitant]
  11. CELEBREX [Concomitant]

REACTIONS (2)
  - DRUG INEFFECTIVE [None]
  - TOBACCO USER [None]
